FAERS Safety Report 10334246 (Version 8)
Quarter: 2014Q4

REPORT INFORMATION
  Report Type: Report from Study
  Country: ES (occurrence: ES)
  Receive Date: 20140723
  Receipt Date: 20141203
  Transmission Date: 20150528
  Serious: Yes (Hospitalization)
  Sender: FDA-Public Use
  Company Number: ES-009507513-1405ESP006071

PATIENT
  Age: 43 Year
  Sex: Male
  Weight: 64.8 kg

DRUGS (13)
  1. PEMBROLIZUMAB. [Suspect]
     Active Substance: PEMBROLIZUMAB
     Indication: MALIGNANT MELANOMA
     Dosage: 10 MG/KG, Q3W
     Route: 042
     Dates: start: 20140211, end: 20140211
  2. OMEPRAZOLE. [Concomitant]
     Active Substance: OMEPRAZOLE
     Indication: PROPHYLAXIS
     Dosage: 20 MG, QD
     Route: 048
     Dates: start: 20140409, end: 20140508
  3. LEVOTHYROXINE SODIUM. [Concomitant]
     Active Substance: LEVOTHYROXINE SODIUM
     Indication: HYPOTHYROIDISM
     Dosage: 75 MICROGRAM, QD
     Route: 048
     Dates: start: 20140403, end: 20140508
  4. CORTENEMA [Concomitant]
     Active Substance: HYDROCORTISONE
     Indication: COLITIS
     Dosage: 80 ML, QD
     Route: 054
     Dates: start: 20140424, end: 20140426
  5. IDEOS UNIDIA [Concomitant]
     Indication: MINERAL SUPPLEMENTATION
     Dosage: 2500 MG, QD
     Route: 048
     Dates: start: 20140422, end: 20140508
  6. LEVOTHYROXINE SODIUM. [Concomitant]
     Active Substance: LEVOTHYROXINE SODIUM
     Indication: HYPOTHYROIDISM
     Dosage: 100 MICROGRAM, QD
     Route: 048
     Dates: start: 20140409
  7. MESALAMINE. [Concomitant]
     Active Substance: MESALAMINE
     Indication: COLITIS
     Dosage: 1200 MG, BID
     Route: 048
     Dates: start: 20140410, end: 20140508
  8. METHYLPREDNISOLONE. [Concomitant]
     Active Substance: METHYLPREDNISOLONE
     Indication: COLITIS
     Dosage: 30 MG, QD
     Route: 048
     Dates: start: 20140429, end: 20140505
  9. METHYLPREDNISOLONE. [Concomitant]
     Active Substance: METHYLPREDNISOLONE
     Indication: COLITIS
     Dosage: 20 MG, QD
     Route: 048
     Dates: start: 20140506, end: 20140508
  10. METHYLPREDNISOLONE. [Concomitant]
     Active Substance: METHYLPREDNISOLONE
     Indication: COLITIS
     Dosage: 40 MG, QD
     Route: 048
     Dates: start: 20140422, end: 20140428
  11. PEMBROLIZUMAB. [Suspect]
     Active Substance: PEMBROLIZUMAB
     Dosage: 10 MG/KG, Q3W
     Route: 042
     Dates: start: 20140304, end: 20140304
  12. SULFAMETHOXAZOLE AND TRIMETHOPRIM DS [Concomitant]
     Active Substance: SULFAMETHOXAZOLE\TRIMETHOPRIM
     Indication: INFECTION PROPHYLAXIS
     Dosage: TOTAL DAILY DOSE 160 MG, FREQUENCY: OTHER
     Route: 048
     Dates: start: 20140410, end: 20140515
  13. GANCICLOVIR. [Concomitant]
     Active Substance: GANCICLOVIR
     Indication: CYTOMEGALOVIRUS INFECTION
     Dosage: 300 MG, BID
     Route: 042
     Dates: start: 20140507, end: 20140606

REACTIONS (1)
  - Hepatic function abnormal [Recovering/Resolving]

NARRATIVE: CASE EVENT DATE: 20140508
